FAERS Safety Report 12676364 (Version 2)
Quarter: 2016Q3

REPORT INFORMATION
  Report Type: Spontaneous
  Country: JP (occurrence: JP)
  Receive Date: 20160823
  Receipt Date: 20160901
  Transmission Date: 20161109
  Serious: Yes (Hospitalization)
  Sender: FDA-Public Use
  Company Number: PHJP2016JP023420

PATIENT
  Age: 65 Year
  Sex: Female

DRUGS (2)
  1. SOSEGON [Concomitant]
     Active Substance: PENTAZOCINE
     Indication: PRODUCT USED FOR UNKNOWN INDICATION
     Dosage: UNK
     Route: 065
  2. VOLTAREN SUP [Suspect]
     Active Substance: DICLOFENAC SODIUM
     Indication: BILIARY COLIC
     Dosage: 50 MG, UNK
     Route: 054

REACTIONS (2)
  - Hypoalbuminaemia [Unknown]
  - Off label use [Unknown]
